FAERS Safety Report 10805602 (Version 1)
Quarter: 2015Q1

REPORT INFORMATION
  Report Type: Report from Study
  Country: US (occurrence: US)
  Receive Date: 20150217
  Receipt Date: 20150217
  Transmission Date: 20150721
  Serious: No
  Sender: FDA-Public Use
  Company Number: US-ABBVIE-14K-163-1264162-00

PATIENT
  Age: 65 Year
  Sex: Female

DRUGS (15)
  1. HUMIRA [Suspect]
     Active Substance: ADALIMUMAB
     Dates: start: 20140701, end: 20140701
  2. NALTREXONE [Concomitant]
     Active Substance: NALTREXONE
     Indication: PAIN
  3. PROCARDIA [Concomitant]
     Active Substance: NIFEDIPINE
     Indication: HYPERTENSION
  4. IMURAN [Concomitant]
     Active Substance: AZATHIOPRINE
     Indication: REITER^S SYNDROME
     Dosage: EVERY MORNING AND AT BEDTIME
  5. TRIAMTERENE AND HYDROCHLOROTHIAZIDE [Concomitant]
     Active Substance: HYDROCHLOROTHIAZIDE\TRIAMTERENE
     Indication: BLOOD PRESSURE
     Dosage: 50 MG/75MG
  6. PLAQUENIL [Concomitant]
     Active Substance: HYDROXYCHLOROQUINE SULFATE
     Indication: PRODUCT USED FOR UNKNOWN INDICATION
  7. SULFASALAZINE. [Concomitant]
     Active Substance: SULFASALAZINE
     Indication: REITER^S SYNDROME
     Dosage: 1500-2000 MG EVERY MORNING AND AFTER DINNER
  8. TRIAMTERENE AND HYDROCHLOROTHIAZIDE [Concomitant]
     Active Substance: HYDROCHLOROTHIAZIDE\TRIAMTERENE
     Indication: HYPERTENSION
  9. PROCARDIA [Concomitant]
     Active Substance: NIFEDIPINE
     Indication: BLOOD PRESSURE
  10. HORIZANT [Concomitant]
     Active Substance: GABAPENTIN ENACARBIL
     Indication: MIGRAINE
     Dosage: AT BEDTIME
  11. HUMIRA [Suspect]
     Active Substance: ADALIMUMAB
     Indication: CROHN^S DISEASE
     Dates: start: 20140617, end: 20140617
  12. CELEBREX [Concomitant]
     Active Substance: CELECOXIB
     Indication: PAIN
  13. CEVIMELINE HCL [Concomitant]
     Indication: SJOGREN^S SYNDROME
  14. HUMIRA [Suspect]
     Active Substance: ADALIMUMAB
     Dates: start: 20140715
  15. SYNTHROID [Concomitant]
     Active Substance: LEVOTHYROXINE SODIUM
     Indication: HYPOTHYROIDISM

REACTIONS (4)
  - Injection site discolouration [Recovering/Resolving]
  - Injection site bruising [Not Recovered/Not Resolved]
  - Injection site pain [Not Recovered/Not Resolved]
  - Pain in extremity [Unknown]

NARRATIVE: CASE EVENT DATE: 20140617
